FAERS Safety Report 9056177 (Version 1)
Quarter: 2013Q1

REPORT INFORMATION
  Report Type: Spontaneous
  Country: US (occurrence: US)
  Receive Date: 20130205
  Receipt Date: 20130205
  Transmission Date: 20140127
  Serious: Yes (Other)
  Sender: FDA-Public Use
  Company Number: CHPA2012US023021

PATIENT
  Age: 60 Year
  Sex: Female

DRUGS (4)
  1. EXCEDRIN EXTRA STRENGTH [Suspect]
     Indication: MIGRAINE
     Dosage: UNK DF, UNK
     Route: 048
  2. EXCEDRIN MIGRAINE [Suspect]
     Indication: MIGRAINE
     Dosage: UNK, UNK
     Route: 048
  3. PROAIR (FLUTICASONE PROPIONATE) [Concomitant]
     Indication: ASTHMA
  4. DULERA [Concomitant]
     Indication: ASTHMA

REACTIONS (7)
  - Thyroid disorder [Unknown]
  - Headache [Unknown]
  - Feeling abnormal [Unknown]
  - Food allergy [Unknown]
  - Migraine [Unknown]
  - Paraesthesia [Unknown]
  - Hypoaesthesia [Unknown]
